FAERS Safety Report 22067667 (Version 2)
Quarter: 2023Q1

REPORT INFORMATION
  Report Type: Spontaneous
  Country: US (occurrence: None)
  Receive Date: 20230307
  Receipt Date: 20230313
  Transmission Date: 20230418
  Serious: Yes (Other)
  Sender: FDA-Public Use
  Company Number: US-ROCHE-3296973

PATIENT
  Age: 60 Year
  Sex: Male

DRUGS (5)
  1. LUCENTIS [Suspect]
     Active Substance: RANIBIZUMAB
     Indication: Diabetic retinal oedema
     Route: 050
     Dates: start: 202103, end: 202210
  2. VABYSMO [Suspect]
     Active Substance: FARICIMAB-SVOA
     Indication: Diabetic retinal oedema
     Route: 050
     Dates: start: 20221120
  3. AVASTIN [Suspect]
     Active Substance: BEVACIZUMAB
     Indication: Product used for unknown indication
     Route: 050
     Dates: start: 2017, end: 2021
  4. CARBIDOPA LEVODOPA [Concomitant]
     Active Substance: CARBIDOPA\LEVODOPA
     Indication: Tremor
     Dates: start: 202003, end: 202301
  5. OZURDEX [Concomitant]
     Active Substance: DEXAMETHASONE
     Route: 050
     Dates: start: 202106

REACTIONS (8)
  - Blindness unilateral [Unknown]
  - Drug ineffective [Unknown]
  - Parkinson^s disease [Unknown]
  - Tremor [Unknown]
  - Cataract [Unknown]
  - Fall [Unknown]
  - Off label use [Unknown]
  - Retinal detachment [Unknown]
